FAERS Safety Report 4574989-4 (Version None)
Quarter: 2005Q1

REPORT INFORMATION
  Report Type: 
  Country: None (occurrence: None)
  Receive Date: 20050208
  Receipt Date: 20050128
  Transmission Date: 20050727
  Serious: Yes (Other)
  Sender: FDA-Public Use
  Company Number: FR-JNJFOC-20040602378

PATIENT
  Sex: Female

DRUGS (5)
  1. EPITOMAX [Suspect]
     Indication: EPILEPSY
     Route: 049
  2. STEDIRIL [Concomitant]
  3. STEDIRIL [Concomitant]
  4. TEGRETOL [Concomitant]
  5. SPECIAFOLDINE [Concomitant]

REACTIONS (4)
  - ABORTION INDUCED [None]
  - DRUG EXPOSURE DURING PREGNANCY [None]
  - PREGNANCY ON ORAL CONTRACEPTIVE [None]
  - PREMATURE RUPTURE OF MEMBRANES [None]
